FAERS Safety Report 15664754 (Version 2)
Quarter: 2019Q1

REPORT INFORMATION
  Report Type: Spontaneous
  Country: US (occurrence: US)
  Receive Date: 20181128
  Receipt Date: 20190106
  Transmission Date: 20190417
  Serious: Yes (Other)
  Sender: FDA-Public Use
  Company Number: US-PFIZER INC-2017220854

PATIENT
  Age: 64 Year
  Sex: Male
  Weight: 68 kg

DRUGS (6)
  1. DULOXETINE. [Concomitant]
     Active Substance: DULOXETINE
     Indication: PAIN
  2. RANITIDINE. [Concomitant]
     Active Substance: RANITIDINE
     Indication: GASTROOESOPHAGEAL REFLUX DISEASE
     Dosage: 300 MG, AS NEEDED (GOES THROUGH PROBABLY 30 TABLETS IN 8 OR 9 MONTHS)
     Route: 048
     Dates: start: 2016
  3. DULOXETINE. [Concomitant]
     Active Substance: DULOXETINE
     Indication: DEPRESSION
     Dosage: 60 MG, 1X/DAY (60MG CAPSULE TAKEN BY MOUTH ONCE DAILY IN THE MORNING)
     Route: 048
     Dates: start: 2014
  4. LYRICA [Suspect]
     Active Substance: PREGABALIN
     Indication: PAIN
     Dosage: 150 MG, 3X/DAY
     Route: 048
     Dates: start: 2016
  5. RECLAST [Concomitant]
     Active Substance: ZOLEDRONIC ACID
     Indication: OSTEOARTHRITIS
     Dosage: UNK (INFUSION ONCE YEARLY)
     Dates: start: 201606
  6. TRIAZOLAM. [Concomitant]
     Active Substance: TRIAZOLAM
     Indication: INSOMNIA
     Dosage: 0.5 MG, DAILY (0.25MG TABLETS-2 TABLETS (0.5MG TOTAL) TAKEN BY MOUTH AT BEDTIME DAILY)
     Route: 048
     Dates: start: 1999

REACTIONS (10)
  - Product dose omission [Unknown]
  - Asthenia [Unknown]
  - Drug effect delayed [Unknown]
  - Dizziness [Unknown]
  - Euphoric mood [Recovered/Resolved]
  - Pneumonia [Recovered/Resolved]
  - Respiratory tract congestion [Not Recovered/Not Resolved]
  - Vomiting [Unknown]
  - Haemoptysis [Unknown]
  - Dyspnoea [Unknown]

NARRATIVE: CASE EVENT DATE: 2018
